FAERS Safety Report 7778502 (Version 3)
Quarter: 2014Q2

REPORT INFORMATION
  Report Type: Spontaneous
  Country: GB (occurrence: GB)
  Receive Date: 20110128
  Receipt Date: 20140417
  Transmission Date: 20141212
  Serious: Yes (Other)
  Sender: FDA-Public Use
  Company Number: PHHY2010GB90037

PATIENT
  Age: 75 Year
  Sex: Female

DRUGS (11)
  1. DEXAMETHASONE [Suspect]
     Indication: PROPHYLAXIS
     Dosage: 1 %, QID
     Route: 061
  2. GENTAMICIN [Suspect]
     Indication: KERATITIS FUNGAL
     Dosage: 1.5 %, UNK
  3. GENTAMICIN [Suspect]
     Dosage: 0.3 %, UNK
  4. OFLOXACIN [Suspect]
     Indication: KERATITIS FUNGAL
     Dosage: UNK UKN, UNK
  5. FLUCONAZOLE [Suspect]
     Indication: KERATITIS FUNGAL
     Dosage: 0.2 %, UNK
     Route: 061
  6. CEFUROXIME [Suspect]
     Indication: KERATITIS FUNGAL
     Dosage: 5 %, UNK
  7. ITRACONAZOLE [Suspect]
     Indication: KERATITIS FUNGAL
     Dosage: 100 MG, BID
     Route: 048
  8. VORICONAZOLE [Suspect]
     Indication: KERATITIS FUNGAL
     Dosage: 400 MG, LOADING DOSE
     Route: 048
  9. VORICONAZOLE [Suspect]
     Dosage: 200 MG, BID
  10. AMPHOTERICIN B [Suspect]
     Indication: PROPHYLAXIS
     Dosage: 0.15 %, UNK
  11. GENTAMICIN [Suspect]
     Indication: KERATITIS FUNGAL

REACTIONS (8)
  - Keratitis [Recovered/Resolved]
  - Keratitis fungal [Unknown]
  - Eye abscess [Recovered/Resolved]
  - Corneal oedema [Recovered/Resolved]
  - Dacryocanaliculitis [Unknown]
  - Transplant rejection [Recovered/Resolved]
  - Drug resistance [Unknown]
  - Eye pruritus [Unknown]
